FAERS Safety Report 17366971 (Version 1)
Quarter: 2020Q1

REPORT INFORMATION
  Report Type: Spontaneous
  Country: US (occurrence: US)
  Receive Date: 20200204
  Receipt Date: 20200204
  Transmission Date: 20200409
  Serious: No
  Sender: FDA-Public Use
  Company Number: US-TEVA-2020-US-1177547

PATIENT
  Age: 65 Year
  Sex: Male

DRUGS (1)
  1. LIDOCAINE W/PRILOCAINE [Suspect]
     Active Substance: LIDOCAINE\PRILOCAINE
     Route: 061

REACTIONS (2)
  - Application site vesicles [Unknown]
  - Application site exfoliation [Unknown]
